FAERS Safety Report 9334746 (Version 2)
Quarter: 2013Q4

REPORT INFORMATION
  Report Type: Spontaneous
  Country: US (occurrence: US)
  Receive Date: 20130606
  Receipt Date: 20131008
  Transmission Date: 20140711
  Serious: No
  Sender: FDA-Public Use
  Company Number: US-AMGEN-USASP2013031513

PATIENT
  Age: 54 Year
  Sex: Female
  Weight: 57.14 kg

DRUGS (6)
  1. PROLIA [Suspect]
     Indication: OSTEOPOROSIS
     Dosage: 60 MG, Q6MO
     Route: 058
     Dates: start: 20130311
  2. ADVAIR [Concomitant]
  3. SINGULAIR [Concomitant]
  4. PREMARIN [Concomitant]
  5. ESTRACE [Concomitant]
     Route: 048
  6. LEVOTHYROXINE [Concomitant]
     Route: 048

REACTIONS (3)
  - Pain in jaw [Not Recovered/Not Resolved]
  - Tooth abscess [Unknown]
  - Gastrointestinal disorder [Unknown]
